FAERS Safety Report 23552509 (Version 2)
Quarter: 2024Q1

REPORT INFORMATION
  Report Type: Spontaneous
  Country: BE (occurrence: BE)
  Receive Date: 20240222
  Receipt Date: 20240227
  Transmission Date: 20240409
  Serious: Yes (Hospitalization, Other)
  Sender: FDA-Public Use
  Company Number: BE-ABBVIE-5524665

PATIENT
  Sex: Male
  Weight: 113 kg

DRUGS (5)
  1. ADALIMUMAB [Suspect]
     Active Substance: ADALIMUMAB\ISOPROPYL ALCOHOL
     Indication: Psoriasis
     Dosage: 40 MG, Q2W
     Route: 058
     Dates: start: 20230102, end: 20230907
  2. SKYRIZI [Suspect]
     Active Substance: RISANKIZUMAB-RZAA
     Indication: Psoriasis
     Dosage: 600 MG
     Route: 042
     Dates: start: 20230913, end: 20231109
  3. SKYRIZI [Suspect]
     Active Substance: RISANKIZUMAB-RZAA
     Indication: Crohn^s disease
  4. BUDESONIDE [Concomitant]
     Active Substance: BUDESONIDE
     Indication: Crohn^s disease
     Dosage: (STRENGHTH: 0.125, 0.25, 0.5,)FREQUENCY: : 3-2-1 TIMES A DAY AND : 2-1 TIMES A DAY
     Route: 048
     Dates: start: 20231112, end: 20231117
  5. BUDESONIDE [Concomitant]
     Active Substance: BUDESONIDE
     Indication: Psoriasis

REACTIONS (9)
  - Small intestinal obstruction [Recovering/Resolving]
  - Abdominal abscess [Recovering/Resolving]
  - Fistula of small intestine [Recovering/Resolving]
  - Faecal calprotectin increased [Unknown]
  - Inflammatory bowel disease [Unknown]
  - Gastrointestinal disorder [Unknown]
  - Crohn^s disease [Unknown]
  - Psoriasis [Recovered/Resolved]
  - Faecal calprotectin increased [Unknown]

NARRATIVE: CASE EVENT DATE: 20230101
